FAERS Safety Report 5846936-6 (Version None)
Quarter: 2008Q3

REPORT INFORMATION
  Report Type: 
  Country: None (occurrence: None)
  Receive Date: 20080815
  Receipt Date: 20080806
  Transmission Date: 20090109
  Serious: Yes (Life-Threatening, Other)
  Sender: FDA-Public Use
  Company Number: US-ELI_LILLY_AND_COMPANY-US200805006129

PATIENT
  Sex: Female
  Weight: 107.3 kg

DRUGS (11)
  1. CYMBALTA [Suspect]
     Indication: DEPRESSION
     Dosage: 30 MG, DAILY (1/D)
     Dates: start: 20070801, end: 20080313
  2. CYMBALTA [Suspect]
     Dosage: 60 MG, DAILY (1/D)
     Dates: start: 20080313, end: 20080403
  3. CYMBALTA [Suspect]
     Dosage: 30 MG, DAILY (1/D)
     Dates: start: 20080403
  4. ASTEMIZOLE [Concomitant]
  5. LORTAB [Concomitant]
  6. NAPROSYN [Concomitant]
  7. TRAMADOL HCL [Concomitant]
  8. CODEINE SUL TAB [Concomitant]
  9. LIDODERM [Concomitant]
  10. VISTARIL [Concomitant]
     Dosage: 25 MG, EACH MORNING
  11. ATIVAN [Concomitant]
     Dosage: 0.5 MG, EACH EVENING

REACTIONS (7)
  - BLOOD URIC ACID INCREASED [None]
  - DIVERTICULUM [None]
  - FLANK PAIN [None]
  - HAEMANGIOMA OF LIVER [None]
  - NEPHROLITHIASIS [None]
  - NEURALGIA [None]
  - SUICIDAL IDEATION [None]
